FAERS Safety Report 4575553-3 (Version None)
Quarter: 2005Q1

REPORT INFORMATION
  Report Type: 
  Country: None (occurrence: None)
  Receive Date: 20050128
  Receipt Date: 20050128
  Transmission Date: 20050727
  Serious: Yes (Other)
  Sender: FDA-Public Use
  Company Number: None

PATIENT
  Age: 39 Year
  Sex: Male
  Weight: 65.318 kg

DRUGS (11)
  1. ELOXATIN [Suspect]
     Indication: COLON CANCER
     Dosage: 149 MG   EVERY MONTH   INTRAVENOU
     Route: 042
     Dates: start: 20031225, end: 20041125
  2. LEUCOVORIN CALCIUM [Concomitant]
  3. FLUOROURACIL [Concomitant]
  4. BENADRYL [Concomitant]
  5. DECADRON [Concomitant]
  6. ANZEMET [Concomitant]
  7. ATIVAN [Concomitant]
  8. PROMETHAZINE [Concomitant]
  9. ARANESP [Concomitant]
  10. LORTAB [Concomitant]
  11. COUMADIN [Concomitant]

REACTIONS (2)
  - FLUSHING [None]
  - PRURITUS [None]
